FAERS Safety Report 10213554 (Version 1)
Quarter: 2014Q2

REPORT INFORMATION
  Report Type: Spontaneous
  Country: BR (occurrence: BR)
  Receive Date: 20140603
  Receipt Date: 20140603
  Transmission Date: 20141212
  Serious: Yes (Hospitalization)
  Sender: FDA-Public Use
  Company Number: BR-ELI_LILLY_AND_COMPANY-BR201405007264

PATIENT
  Age: 3 Year
  Sex: Male
  Weight: 16.4 kg

DRUGS (3)
  1. HUMALOG [Suspect]
     Indication: DIABETES MELLITUS
     Dosage: 2 IU, QD
     Route: 065
     Dates: start: 20140504, end: 20140504
  2. HUMALOG [Suspect]
     Dosage: 0.5 IU, PRN
     Route: 065
     Dates: start: 20140504
  3. LANTUS [Concomitant]
     Indication: PRODUCT USED FOR UNKNOWN INDICATION
     Dosage: UNK, UNKNOWN
     Route: 065

REACTIONS (4)
  - Vomiting [Recovered/Resolved]
  - Feeding disorder [Recovered/Resolved]
  - Blood glucose decreased [Not Recovered/Not Resolved]
  - Blood glucose fluctuation [Not Recovered/Not Resolved]
